FAERS Safety Report 25750361 (Version 1)
Quarter: 2025Q3

REPORT INFORMATION
  Report Type: Spontaneous
  Country: US (occurrence: None)
  Receive Date: 20250829
  Receipt Date: 20250829
  Transmission Date: 20251020
  Serious: No
  Sender: FDA-CTU
  Company Number: None

PATIENT
  Age: 36 Year
  Sex: Female
  Weight: 101.25 kg

DRUGS (17)
  1. JOURNAVX [Suspect]
     Active Substance: SUZETRIGINE
     Indication: Procedural pain
     Dosage: TWICE A DAY ORAL
     Route: 048
     Dates: start: 20250818, end: 20250822
  2. OXYCODONE [Concomitant]
     Active Substance: OXYCODONE
  3. TIZANIDINE [Concomitant]
     Active Substance: TIZANIDINE
  4. ADDERALL [Concomitant]
     Active Substance: AMPHETAMINE ASPARTATE\AMPHETAMINE SULFATE\DEXTROAMPHETAMINE SACCHARATE\DEXTROAMPHETAMINE SULFATE
  5. CROMOLYN SODIUM [Concomitant]
     Active Substance: CROMOLYN SODIUM
  6. HYDROXYCHLOROQUINE [Concomitant]
     Active Substance: HYDROXYCHLOROQUINE
  7. DESMOPRESSIN [Concomitant]
     Active Substance: DESMOPRESSIN
  8. TRIAMCINOLONE ACETONIDE [Concomitant]
     Active Substance: TRIAMCINOLONE ACETONIDE
  9. SENNA [Concomitant]
     Active Substance: SENNOSIDES
  10. TYLENOL [Concomitant]
     Active Substance: ACETAMINOPHEN
  11. IRON [Concomitant]
     Active Substance: IRON
  12. VITAMIN D [Concomitant]
     Active Substance: VITAMIN D NOS
  13. VITAMIN C [Concomitant]
     Active Substance: ASCORBIC ACID
  14. FAMOTIDINE [Concomitant]
     Active Substance: FAMOTIDINE
  15. guercetin [Concomitant]
  16. ZINC [Concomitant]
     Active Substance: ZINC
  17. DULCOLAX NOS [Concomitant]
     Active Substance: UNSPECIFIED INGREDIENT

REACTIONS (6)
  - Abnormal dreams [None]
  - Muscle spasms [None]
  - Myoclonus [None]
  - Restless legs syndrome [None]
  - Non-24-hour sleep-wake disorder [None]
  - Somnambulism [None]

NARRATIVE: CASE EVENT DATE: 20250820
